FAERS Safety Report 4964161-8 (Version None)
Quarter: 2006Q1

REPORT INFORMATION
  Report Type: 
  Country: None (occurrence: None)
  Receive Date: 20060331
  Receipt Date: 20060316
  Transmission Date: 20060701
  Serious: Yes (Hospitalization, Other)
  Sender: FDA-Public Use
  Company Number: BR-2006-006065

PATIENT
  Age: 56 Year
  Sex: Female

DRUGS (2)
  1. BETAFERON(INTERFERON BETA - 1B) INJECTION, 250UG [Suspect]
     Indication: MULTIPLE SCLEROSIS
     Dosage: 8 MIU, SUBCUTANEOUS
     Route: 058
     Dates: start: 20030801, end: 20051001
  2. RENITEC [Concomitant]

REACTIONS (1)
  - MYOCARDIAL INFARCTION [None]
